FAERS Safety Report 5918339-7 (Version None)
Quarter: 2008Q4

REPORT INFORMATION
  Report Type: 
  Country: None (occurrence: None)
  Receive Date: 20081010
  Receipt Date: 20080930
  Transmission Date: 20090506
  Serious: Yes (Other)
  Sender: FDA-Public Use
  Company Number: 08US001087

PATIENT
  Age: 70 Year
  Sex: Male
  Weight: 80.3 kg

DRUGS (7)
  1. LITHOBID [Suspect]
     Indication: BIPOLAR DISORDER
     Dosage: SEE IMAGE
     Route: 048
     Dates: start: 19870601
  2. ZOCOR [Concomitant]
  3. FLOMAX [Concomitant]
  4. BETAPACE [Concomitant]
  5. COUMADIN [Concomitant]
  6. LACTULOSE [Concomitant]
  7. VIAGRA [Concomitant]

REACTIONS (5)
  - ATRIAL FIBRILLATION [None]
  - BENIGN PROSTATIC HYPERPLASIA [None]
  - BRADYCARDIA [None]
  - LUNG NEOPLASM [None]
  - NEUROPATHY PERIPHERAL [None]
